FAERS Safety Report 6346607-6 (Version None)
Quarter: 2009Q3

REPORT INFORMATION
  Report Type: 
  Country: None (occurrence: None)
  Receive Date: 20090902
  Receipt Date: 20090826
  Transmission Date: 20100115
  Serious: Yes (Other)
  Sender: FDA-Public Use
  Company Number: CHPA2009US17669

PATIENT
  Age: 42 Year
  Sex: Male

DRUGS (5)
  1. NICOTINE [Suspect]
     Indication: SMOKING CESSATION THERAPY
     Dosage: 21 MG, QD, TRANSDERMAL
     Route: 062
  2. RISPERIDONE [Concomitant]
  3. BENZTROPINE MESYLATE [Concomitant]
  4. DEPAKOTE [Concomitant]
  5. DIAZEPAM [Concomitant]

REACTIONS (1)
  - EMPHYSEMA [None]
